FAERS Safety Report 24366459 (Version 1)
Quarter: 2024Q3

REPORT INFORMATION
  Report Type: Spontaneous
  Country: US (occurrence: US)
  Receive Date: 20240926
  Receipt Date: 20240926
  Transmission Date: 20241017
  Serious: No
  Sender: ABBVIE
  Company Number: US-ABBVIE-5932099

PATIENT
  Sex: Female
  Weight: 95.254 kg

DRUGS (3)
  1. HUMIRA [Suspect]
     Active Substance: ADALIMUMAB
     Indication: Colitis ulcerative
     Dosage: STRENGTH: 40MG/0.4ML
     Route: 058
     Dates: start: 20240701
  2. HUMIRA [Suspect]
     Active Substance: ADALIMUMAB
     Dosage: STRENGTH: 40MG/0.4ML
     Route: 058
     Dates: start: 2012, end: 2024
  3. METOPROLOL [Concomitant]
     Active Substance: METOPROLOL
     Indication: Hypertension

REACTIONS (6)
  - Contusion [Recovering/Resolving]
  - Limb injury [Recovering/Resolving]
  - White blood cell count increased [Recovered/Resolved]
  - Skin ulcer [Recovering/Resolving]
  - C-reactive protein increased [Recovered/Resolved]
  - Contusion [Recovering/Resolving]

NARRATIVE: CASE EVENT DATE: 20240101
